FAERS Safety Report 7685908-6 (Version None)
Quarter: 2011Q3

REPORT INFORMATION
  Report Type: 
  Country: None (occurrence: None)
  Receive Date: 20110816
  Receipt Date: 20110805
  Transmission Date: 20111222
  Serious: Yes (Other)
  Sender: FDA-Public Use
  Company Number: US-ELI_LILLY_AND_COMPANY-US201106000282

PATIENT
  Sex: Female

DRUGS (12)
  1. HUMALOG [Suspect]
     Dosage: UNK, PRN
  2. HUMALOG [Suspect]
     Dosage: UNK, PRN
     Dates: start: 20060101
  3. HUMALOG [Suspect]
     Dosage: UNK, PRN
  4. HUMALOG [Suspect]
     Dosage: UNK, PRN
  5. OXYGEN [Concomitant]
     Dosage: UNK
  6. HUMALOG [Suspect]
     Indication: TYPE 2 DIABETES MELLITUS
     Dosage: UNK, PRN
     Dates: start: 20100101
  7. HUMALOG [Suspect]
     Dosage: UNK, PRN
     Dates: start: 20060101
  8. HUMALOG [Suspect]
     Dosage: UNK, PRN
     Dates: start: 20100101
  9. LEVEMIR [Concomitant]
  10. HUMALOG [Suspect]
     Dosage: UNK, PRN
  11. HUMALOG [Suspect]
     Dosage: UNK, PRN
     Dates: start: 20100101
  12. HUMALOG [Suspect]
     Dosage: UNK, PRN
     Dates: start: 20100101

REACTIONS (7)
  - ASTHENIA [None]
  - PRURITUS [None]
  - TREMOR [None]
  - SCOTOMA [None]
  - BLOOD GLUCOSE DECREASED [None]
  - BLINDNESS [None]
  - RASH [None]
